FAERS Safety Report 8000412-3 (Version None)
Quarter: 2011Q4

REPORT INFORMATION
  Report Type: 
  Country: None (occurrence: None)
  Receive Date: 20111222
  Receipt Date: 20101213
  Transmission Date: 20120403
  Serious: No
  Sender: FDA-Public Use
  Company Number: US-BRISTOL-MYERS SQUIBB COMPANY-15439052

PATIENT
  Age: 65 Year
  Sex: Male

DRUGS (3)
  1. PRAVACHOL [Suspect]
     Indication: BLOOD CHOLESTEROL INCREASED
     Dates: start: 20101208
  2. OMEPRAZOLE [Concomitant]
  3. TAMSULOSIN HCL [Concomitant]

REACTIONS (3)
  - PAIN IN EXTREMITY [None]
  - SOMNOLENCE [None]
  - FATIGUE [None]
